FAERS Safety Report 7394438-0 (Version None)
Quarter: 2011Q2

REPORT INFORMATION
  Report Type: 
  Country: None (occurrence: None)
  Receive Date: 20110405
  Receipt Date: 20110401
  Transmission Date: 20111010
  Serious: No
  Sender: FDA-Public Use
  Company Number: US-PFIZER INC-2011073342

PATIENT
  Sex: Male
  Weight: 133.79 kg

DRUGS (6)
  1. WELLBUTRIN [Concomitant]
     Indication: POST-TRAUMATIC STRESS DISORDER
     Dosage: 300 MG, 1X/DAY
     Route: 048
  2. ZOLOFT [Suspect]
     Dosage: 150 MG, 1X/DAY
     Route: 048
  3. ZOLOFT [Suspect]
     Dosage: 100 MG, 1X/DAY
     Route: 048
  4. AMLODIPINE [Concomitant]
     Indication: BLOOD PRESSURE ABNORMAL
     Dosage: 10 MG, 1X/DAY
     Route: 048
  5. ZOLOFT [Suspect]
     Indication: POST-TRAUMATIC STRESS DISORDER
     Dosage: 50 MG, 1X/DAY
     Route: 048
     Dates: start: 20100101
  6. ZOLOFT [Suspect]
     Dosage: 200 MG, 1X/DAY
     Route: 048

REACTIONS (1)
  - DRUG SCREEN POSITIVE [None]
